FAERS Safety Report 23347296 (Version 1)
Quarter: 2023Q4

REPORT INFORMATION
  Report Type: Spontaneous
  Country: US (occurrence: None)
  Receive Date: 20231227
  Receipt Date: 20231227
  Transmission Date: 20240110
  Serious: Yes (Other)
  Sender: FDA-Public Use
  Company Number: None

PATIENT
  Age: 81 Year
  Sex: Female
  Weight: 54.43 kg

DRUGS (4)
  1. BRILINTA [Suspect]
     Active Substance: TICAGRELOR
     Indication: Arterial disorder
     Dosage: 1 TABLET AT BEDTIME BY MOUTH
     Route: 048
     Dates: start: 20231127, end: 20231201
  2. NP THYROID [Concomitant]
     Active Substance: LEVOTHYROXINE\LIOTHYRONINE
  3. TELMISARTAN [Concomitant]
     Active Substance: TELMISARTAN
  4. COENZYME Q10 [Concomitant]
     Active Substance: DIETARY SUPPLEMENT\UBIDECARENONE

REACTIONS (4)
  - Vitreous floaters [None]
  - Rash [None]
  - Constipation [None]
  - Skin disorder [None]

NARRATIVE: CASE EVENT DATE: 20231204
